FAERS Safety Report 20810022 (Version 1)
Quarter: 2022Q2

REPORT INFORMATION
  Report Type: Report from Study
  Country: FR (occurrence: FR)
  Receive Date: 20220510
  Receipt Date: 20220510
  Transmission Date: 20220720
  Serious: Yes (Hospitalization)
  Sender: FDA-Public Use
  Company Number: FR-G1-000532

PATIENT
  Age: 65 Year
  Sex: Male
  Weight: 65 kg

DRUGS (10)
  1. TRILACICLIB [Suspect]
     Active Substance: TRILACICLIB
     Indication: Myelosuppression
     Dosage: TIME INTERVAL: CYCLICAL; 240 MG/M2 ON DAY 1 AND 8 OF EACH CYCLE
     Route: 041
     Dates: start: 20220413, end: 20220420
  2. CISPLATIN [Suspect]
     Active Substance: CISPLATIN
     Indication: Transitional cell carcinoma
  3. GEMCITABINE [Suspect]
     Active Substance: GEMCITABINE
     Indication: Urethral cancer
     Dosage: TIME INTERVAL: CYCLICAL; 1000 MG/M2 ON DAY 1 AND 8 OF EACH CYCLE
     Route: 041
     Dates: start: 20220413, end: 20220420
  4. AVELUMAB [Suspect]
     Active Substance: AVELUMAB
     Indication: Transitional cell carcinoma
  5. CARBOPLATIN [Suspect]
     Active Substance: CARBOPLATIN
     Indication: Urethral cancer
     Dosage: TIME INTERVAL: CYCLICAL; 4.5 AUC ON DAY 1 OF EACH CYCLE
     Route: 041
     Dates: start: 20220413, end: 20220413
  6. 1222119 (GLOBALC3Sep21): kardegic [Concomitant]
     Indication: Peripheral arterial occlusive disease
     Route: 048
  7. 2253751 (GLOBALC3Sep21): atorvastatine [Concomitant]
     Indication: Dyslipidaemia
     Route: 048
  8. 4772800 (GLOBALC3Sep21): hydrochlorothiazide [Concomitant]
     Indication: Hypertension
     Route: 048
     Dates: end: 20220401
  9. 3053502 (GLOBALC3Sep21): ramipril [Concomitant]
     Indication: Hypertension
     Route: 048
     Dates: end: 20220401
  10. 2481110 (GLOBALC3Sep21): Pantoprazole [Concomitant]
     Indication: Gastrooesophageal reflux prophylaxis
     Route: 048

REACTIONS (1)
  - Febrile bone marrow aplasia [Not Recovered/Not Resolved]

NARRATIVE: CASE EVENT DATE: 20220427
